FAERS Safety Report 5738616-2 (Version None)
Quarter: 2008Q2

REPORT INFORMATION
  Report Type: 
  Country: None (occurrence: None)
  Receive Date: 20080513
  Receipt Date: 20080501
  Transmission Date: 20081010
  Serious: No
  Sender: FDA-Public Use
  Company Number: 20085101

PATIENT
  Sex: Female

DRUGS (1)
  1. LIORESAL [Suspect]
     Indication: MUSCLE SPASTICITY
     Dosage: UNK MCG, DAILY, INTRATHECAL
     Route: 037

REACTIONS (7)
  - DIPLEGIA [None]
  - HEADACHE [None]
  - MOBILITY DECREASED [None]
  - MUSCLE SPASTICITY [None]
  - NAUSEA [None]
  - PRURITUS [None]
  - VISION BLURRED [None]
